FAERS Safety Report 8784313 (Version 1)
Quarter: 2012Q4

REPORT INFORMATION
  Report Type: Spontaneous
  Country: CA (occurrence: None)
  Receive Date: 20120829
  Receipt Date: 20120829
  Transmission Date: 20130627
  Serious: Yes (Other)
  Sender: FDA-Public Use
  Company Number: 2012HGS-003842

PATIENT
  Age: 51 Year
  Sex: Female
  Weight: 101 kg

DRUGS (8)
  1. BENLYSTA [Suspect]
     Indication: PRODUCT USED FOR UNKNOWN INDICATION
     Route: 041
     Dates: start: 20120620
  2. BENLYSTA [Suspect]
     Indication: PRODUCT USED FOR UNKNOWN INDICATION
     Dates: start: 20120704
  3. BENLYSTA [Suspect]
     Indication: PRODUCT USED FOR UNKNOWN INDICATION
     Dates: start: 20120719
  4. PREDNISONE (PREDNISONE)(PREDNISONE) [Concomitant]
  5. HYDROXYCHLOROQUINE (HYDROXYCHLOROQUINE)(HYDROXYCHLOROQTUNE) [Concomitant]
  6. LOSEC (OMEPRAZOLE) (OMEPRAZOLE) [Concomitant]
  7. ATACAND (CANDESARTAN CILEXETIL) (CANDESARTAN CILEXETIL) [Concomitant]
  8. DETROL LA(TOLTERODINE L -TARTRATE)(TOLTERODINE [Concomitant]

REACTIONS (13)
  - Nausea [None]
  - Dizziness [None]
  - Chest pain [None]
  - Headache [None]
  - Bladder pain [None]
  - Ovarian cyst ruptured [None]
  - Chest discomfort [None]
  - Pain of skin [None]
  - Skin burning sensation [None]
  - Dry eye [None]
  - Dry mouth [None]
  - Hyperaesthesia [None]
  - Intestinal stenosis [None]
